FAERS Safety Report 9199142 (Version 2)
Quarter: 2013Q2

REPORT INFORMATION
  Report Type: Spontaneous
  Country: FR (occurrence: FR)
  Receive Date: 20130329
  Receipt Date: 20130409
  Transmission Date: 20140414
  Serious: Yes (Death, Other)
  Sender: FDA-Public Use
  Company Number: FR-009507513-1303FRA011125

PATIENT
  Age: 51 Year
  Sex: Female

DRUGS (6)
  1. VICTRELIS [Suspect]
     Indication: HEPATITIS C
     Dosage: 800 MG, TID
     Route: 048
     Dates: start: 20130204, end: 20130318
  2. NEORECORMON [Suspect]
     Dosage: 30000 IU, QW
     Route: 058
     Dates: end: 20130318
  3. PEGASYS [Suspect]
     Indication: HEPATITIS C
     Dosage: 180 MICROGRAM, QW
     Route: 058
     Dates: start: 20130111, end: 20130318
  4. COPEGUS [Suspect]
     Indication: HEPATITIS C
     Dosage: 600 MG, BID
     Route: 048
     Dates: start: 20130111, end: 20130318
  5. TRUVADA [Concomitant]
     Dosage: UNK
     Dates: start: 20120212
  6. ISENTRESS [Concomitant]
     Dosage: UNK
     Dates: start: 20120212

REACTIONS (4)
  - Sudden death [Fatal]
  - Abdominal pain [Unknown]
  - Nausea [Unknown]
  - Vomiting [Unknown]
